FAERS Safety Report 9022718 (Version 1)
Quarter: 2013Q1

REPORT INFORMATION
  Report Type: Spontaneous
  Country: US (occurrence: US)
  Receive Date: 20130120
  Receipt Date: 20130120
  Transmission Date: 20140127
  Serious: No
  Sender: FDA-Public Use
  Company Number: US-ALLERGAN-1217898US

PATIENT
  Sex: Male

DRUGS (6)
  1. BOTOX? [Suspect]
     Indication: BLEPHAROSPASM
     Dosage: 10 UNITS, SINGLE
     Route: 030
     Dates: start: 20120928, end: 20120928
  2. BOTOX? [Suspect]
     Indication: SKIN WRINKLING
     Dosage: 100 UNITS, SINGLE
     Route: 030
     Dates: start: 20120929, end: 20120929
  3. LISINOPRIL HCT [Concomitant]
     Indication: HYPERTENSION
     Dosage: UNK
  4. EXFORGE [Concomitant]
     Indication: HYPERTENSION
     Dosage: UNK
  5. SIMVASTATIN [Concomitant]
     Indication: BLOOD CHOLESTEROL INCREASED
     Dosage: UNK
  6. COREG [Concomitant]
     Indication: PRODUCT USED FOR UNKNOWN INDICATION
     Dosage: UNK

REACTIONS (2)
  - Photophobia [Not Recovered/Not Resolved]
  - Eyelid ptosis [Not Recovered/Not Resolved]
